FAERS Safety Report 8400382-X (Version None)
Quarter: 2012Q2

REPORT INFORMATION
  Report Type: 
  Country: None (occurrence: None)
  Receive Date: 20120531
  Receipt Date: 20120521
  Transmission Date: 20120825
  Serious: Yes (Other)
  Sender: FDA-Public Use
  Company Number: US-FRI-1000030333

PATIENT
  Sex: Female
  Weight: 136 kg

DRUGS (1)
  1. LEVOTHROID [Suspect]
     Indication: AUTOIMMUNE THYROIDITIS
     Dosage: 150 UG
     Dates: start: 20000101

REACTIONS (5)
  - CARDIAC DISORDER [None]
  - ARRHYTHMIA [None]
  - THYROID FUNCTION TEST ABNORMAL [None]
  - OFF LABEL USE [None]
  - DRUG LEVEL FLUCTUATING [None]
